FAERS Safety Report 24632696 (Version 1)
Quarter: 2024Q4

REPORT INFORMATION
  Report Type: Spontaneous
  Country: US (occurrence: US)
  Receive Date: 20241118
  Receipt Date: 20241118
  Transmission Date: 20250115
  Serious: No
  Sender: PERRIGO
  Company Number: US-PERRIGO-24US004486

PATIENT
  Age: 19 Year
  Sex: Female
  Weight: 58.957 kg

DRUGS (3)
  1. OPILL [Suspect]
     Active Substance: NORGESTREL
     Indication: Contraception
     Dosage: 0.075 MG, SINGLE
     Route: 048
     Dates: start: 20240502, end: 20240502
  2. PLAN B [Suspect]
     Active Substance: LEVONORGESTREL
     Indication: Post coital contraception
     Dosage: UNKNOWN, SINGLE
     Route: 048
     Dates: start: 20240503, end: 20240503
  3. TOPAMAX [Concomitant]
     Active Substance: TOPIRAMATE
     Indication: Seizure
     Dosage: UNKNOWN, UNKNOWN
     Route: 065

REACTIONS (2)
  - Polymenorrhoea [Not Recovered/Not Resolved]
  - Product administration error [Unknown]

NARRATIVE: CASE EVENT DATE: 20240503
